FAERS Safety Report 22146998 (Version 1)
Quarter: 2023Q1

REPORT INFORMATION
  Report Type: Spontaneous
  Country: US (occurrence: US)
  Receive Date: 20230328
  Receipt Date: 20230328
  Transmission Date: 20230417
  Serious: No
  Sender: FDA-Public Use
  Company Number: US-Nobelpharma America, LLC-NPA-2023-00464

PATIENT
  Age: 66 Year
  Sex: Female

DRUGS (2)
  1. HYFTOR [Suspect]
     Active Substance: SIROLIMUS
     Indication: Tuberous sclerosis complex
     Dosage: APPLY 2.5 CM TOPICALLY TO THE FACE (ANGIOFIBROMAS) TWICE DAILY
     Route: 061
     Dates: start: 20230126
  2. Sumatriptan tab 50 mg [Concomitant]

REACTIONS (1)
  - Rash [Unknown]

NARRATIVE: CASE EVENT DATE: 20230101
